FAERS Safety Report 20687834 (Version 4)
Quarter: 2024Q3

REPORT INFORMATION
  Report Type: Spontaneous
  Country: US (occurrence: US)
  Receive Date: 20220408
  Receipt Date: 20240713
  Transmission Date: 20241017
  Serious: No
  Sender: SANOFI AVENTIS
  Company Number: US-SA-2022SA118254

PATIENT
  Age: 63 Year
  Sex: Female

DRUGS (1)
  1. KEVZARA [Suspect]
     Active Substance: SARILUMAB
     Indication: Rheumatoid arthritis
     Dosage: 200 MG, QOW
     Route: 058
     Dates: start: 202006

REACTIONS (12)
  - Joint swelling [Not Recovered/Not Resolved]
  - Arthralgia [Not Recovered/Not Resolved]
  - Inflammation [Unknown]
  - Condition aggravated [Unknown]
  - Pain [Unknown]
  - Pain in extremity [Unknown]
  - Joint swelling [Unknown]
  - Illness [Unknown]
  - Peripheral swelling [Unknown]
  - Arthralgia [Unknown]
  - Dental operation [Unknown]
  - Inappropriate schedule of product administration [Unknown]

NARRATIVE: CASE EVENT DATE: 20220301
